APPROVED DRUG PRODUCT: ESZOPICLONE
Active Ingredient: ESZOPICLONE
Strength: 2MG
Dosage Form/Route: TABLET;ORAL
Application: A203087 | Product #002
Applicant: PHARMOBEDIENT CONSULTING LLC
Approved: May 8, 2019 | RLD: No | RS: No | Type: DISCN